FAERS Safety Report 22392114 (Version 13)
Quarter: 2024Q3

REPORT INFORMATION
  Report Type: Report from Study
  Country: DE (occurrence: DE)
  Receive Date: 20230601
  Receipt Date: 20240912
  Transmission Date: 20241016
  Serious: Yes (Hospitalization, Other)
  Sender: ROCHE
  Company Number: DE-ROCHE-3136814

PATIENT
  Age: 53 Year
  Sex: Female

DRUGS (7)
  1. OCREVUS [Suspect]
     Active Substance: OCRELIZUMAB
     Indication: Relapsing-remitting multiple sclerosis
     Dosage: 600 MG 195, 192 DAYS
     Route: 042
     Dates: start: 20220704
  2. CITALOPRAM [Suspect]
     Active Substance: CITALOPRAM\CITALOPRAM HYDROBROMIDE
     Indication: Product used for unknown indication
     Route: 065
  3. ROSUVASTATIN [Concomitant]
     Active Substance: ROSUVASTATIN\ROSUVASTATIN CALCIUM
     Dosage: 0-0-1
  4. EZETIMIBE [Concomitant]
     Active Substance: EZETIMIBE
     Dosage: 0-0-1
  5. FLUOXETINE [Concomitant]
     Active Substance: FLUOXETINE HYDROCHLORIDE
     Dosage: 1-0-0
  6. ACETAMINOPHEN [Concomitant]
     Active Substance: ACETAMINOPHEN
  7. ESCITALOPRAM [Concomitant]
     Active Substance: ESCITALOPRAM OXALATE

REACTIONS (26)
  - Fatigue [Recovered/Resolved]
  - Dry mouth [Recovered/Resolved]
  - Thirst [Recovered/Resolved]
  - Headache [Recovered/Resolved]
  - Dizziness [Recovering/Resolving]
  - Hypoaesthesia [Recovered/Resolved]
  - Fatigue [Recovered/Resolved]
  - Influenza like illness [Recovered/Resolved]
  - Headache [Unknown]
  - Eye swelling [Recovered/Resolved]
  - Pain in extremity [Not Recovered/Not Resolved]
  - COVID-19 [Recovered/Resolved]
  - Intercostal neuralgia [Recovered/Resolved]
  - Incontinence [Recovered/Resolved]
  - Cough [Recovered/Resolved]
  - Fall [Unknown]
  - Joint swelling [Recovered/Resolved]
  - Haematoma [Recovered/Resolved]
  - Compartment syndrome [Not Recovered/Not Resolved]
  - Induration [Recovered/Resolved]
  - Hypersensitivity [Recovered/Resolved]
  - Peripheral swelling [Not Recovered/Not Resolved]
  - Hunger [Recovered/Resolved]
  - Polyneuropathy [Not Recovered/Not Resolved]
  - Meningioma [Not Recovered/Not Resolved]
  - Paraesthesia [Not Recovered/Not Resolved]

NARRATIVE: CASE EVENT DATE: 20220704
